FAERS Safety Report 15161035 (Version 1)
Quarter: 2018Q3

REPORT INFORMATION
  Report Type: Report from Study
  Country: US (occurrence: US)
  Receive Date: 20180718
  Receipt Date: 20180718
  Transmission Date: 20181010
  Serious: Yes (Other)
  Sender: FDA-Public Use
  Company Number: US-JAZZ-2018-US-001590

PATIENT
  Age: 47 Year
  Sex: Female

DRUGS (46)
  1. RITALIN [Concomitant]
     Active Substance: METHYLPHENIDATE HYDROCHLORIDE
  2. PEPCID COMPLETE [Concomitant]
     Active Substance: CALCIUM CARBONATE\FAMOTIDINE\MAGNESIUM HYDROXIDE
  3. ADIPEX?P [Concomitant]
     Active Substance: PHENTERMINE HYDROCHLORIDE
  4. ONDANSETRON [Concomitant]
     Active Substance: ONDANSETRON
  5. ANDROGEL [Concomitant]
     Active Substance: TESTOSTERONE
  6. CYMBALTA [Concomitant]
     Active Substance: DULOXETINE HYDROCHLORIDE
  7. HYDROCODONE BITARTRATE AND ACETAMINOPHEN [Concomitant]
     Active Substance: ACETAMINOPHEN\HYDROCODONE BITARTRATE
  8. XYREM [Suspect]
     Active Substance: SODIUM OXYBATE
     Indication: NARCOLEPSY
     Dosage: 2.25 G, BID
     Route: 048
     Dates: start: 201601, end: 201703
  9. XYREM [Suspect]
     Active Substance: SODIUM OXYBATE
     Dosage: 3.75 G, BID
     Route: 048
     Dates: start: 201803, end: 201805
  10. ADDERALL [Concomitant]
     Active Substance: AMPHETAMINE ASPARTATE\AMPHETAMINE SULFATE\DEXTROAMPHETAMINE SACCHARATE\DEXTROAMPHETAMINE SULFATE
  11. CYCLOBENZAPRINE. [Concomitant]
     Active Substance: CYCLOBENZAPRINE
  12. DILAUDID [Concomitant]
     Active Substance: HYDROMORPHONE HYDROCHLORIDE
  13. LYSINE [Concomitant]
     Active Substance: LYSINE
  14. RESTASIS [Concomitant]
     Active Substance: CYCLOSPORINE
  15. VALTREX [Concomitant]
     Active Substance: VALACYCLOVIR HYDROCHLORIDE
  16. PROGESTERONE. [Concomitant]
     Active Substance: PROGESTERONE
  17. XYREM [Suspect]
     Active Substance: SODIUM OXYBATE
     Dosage: 4 G, BID
     Route: 048
     Dates: start: 201805
  18. WELLBUTRIN [Concomitant]
     Active Substance: BUPROPION HYDROCHLORIDE
  19. MELATONIN [Concomitant]
     Active Substance: MELATONIN
  20. LEVOTHYROXINE. [Concomitant]
     Active Substance: LEVOTHYROXINE
  21. ROPINIROLE HCL [Concomitant]
     Active Substance: ROPINIROLE HYDROCHLORIDE
  22. TYLENOL EXTRA STRENGTH [Concomitant]
     Active Substance: ACETAMINOPHEN
  23. ERGOCALCIFEROL. [Concomitant]
     Active Substance: ERGOCALCIFEROL
  24. OMEGA 3 FISH OILS [Concomitant]
     Active Substance: OMEGA-3 FATTY ACIDS
  25. PROAIR HFA [Concomitant]
     Active Substance: ALBUTEROL SULFATE
  26. VICODIN [Concomitant]
     Active Substance: ACETAMINOPHEN\HYDROCODONE BITARTRATE
  27. CEFALEXIN [Concomitant]
     Active Substance: CEPHALEXIN
  28. METOCLOPRAMIDE. [Concomitant]
     Active Substance: METOCLOPRAMIDE
  29. FAMOTIDINE. [Concomitant]
     Active Substance: FAMOTIDINE
  30. CALCIUM CITRATE W/MAGNESIUM CITRATE [Concomitant]
  31. XYREM [Suspect]
     Active Substance: SODIUM OXYBATE
     Indication: CATAPLEXY
     Dosage: 3 G, BID
     Route: 048
     Dates: start: 201801, end: 201803
  32. CYTOMEL [Concomitant]
     Active Substance: LIOTHYRONINE SODIUM
  33. DEXAMETHASONE. [Concomitant]
     Active Substance: DEXAMETHASONE
  34. POTASSIUM [Concomitant]
     Active Substance: POTASSIUM
  35. SPIRONOLACTONE. [Concomitant]
     Active Substance: SPIRONOLACTONE
  36. NAPROXEN SODIUM. [Concomitant]
     Active Substance: NAPROXEN SODIUM
  37. VITAMIN B COMPLEX [Concomitant]
     Active Substance: CYANOCOBALAMIN\DEXPANTHENOL\NIACINAMIDE\PYRIDOXINE HYDROCHLORIDE\RIBOFLAVIN 5^-PHOSPHATE SODIUM\THIAMINE HYDROCHLORIDE\VITAMIN B COMPLEX
  38. ALPRAZOLAM. [Concomitant]
     Active Substance: ALPRAZOLAM
  39. ALEVE [Concomitant]
     Active Substance: NAPROXEN SODIUM
  40. OXYCODONE HYDROCHLORIDE W/OXYCODONE TEREPHTHA [Concomitant]
  41. CYCLOBENZAPRINE HYDROCHLORIDE. [Concomitant]
     Active Substance: CYCLOBENZAPRINE HYDROCHLORIDE
  42. XANAX [Concomitant]
     Active Substance: ALPRAZOLAM
  43. VITAMIN D3 [Concomitant]
     Active Substance: CHOLECALCIFEROL
  44. CLONAZEPAM. [Concomitant]
     Active Substance: CLONAZEPAM
  45. DHEA [Concomitant]
     Active Substance: PRASTERONE
  46. METFORMIN HCL [Concomitant]
     Active Substance: METFORMIN HYDROCHLORIDE

REACTIONS (28)
  - Stress [Not Recovered/Not Resolved]
  - Abdominal discomfort [Unknown]
  - Gait inability [Unknown]
  - Dysphonia [Unknown]
  - Disorientation [Unknown]
  - Tremor [Unknown]
  - Narcolepsy [Unknown]
  - Dysphemia [Unknown]
  - Memory impairment [Recovering/Resolving]
  - Cortisol abnormal [Unknown]
  - Aphasia [Not Recovered/Not Resolved]
  - Cold sweat [Unknown]
  - Abdominal pain upper [Not Recovered/Not Resolved]
  - Fatigue [Unknown]
  - Posture abnormal [Unknown]
  - Condition aggravated [Not Recovered/Not Resolved]
  - Hyperhidrosis [Unknown]
  - Abnormal behaviour [Not Recovered/Not Resolved]
  - Feeling abnormal [Unknown]
  - Nausea [Recovered/Resolved]
  - Confusional state [Not Recovered/Not Resolved]
  - Vision blurred [Unknown]
  - Disturbance in attention [Not Recovered/Not Resolved]
  - Dyspnoea [Unknown]
  - Bradyphrenia [Not Recovered/Not Resolved]
  - Diarrhoea [Not Recovered/Not Resolved]
  - Somnolence [Unknown]
  - Oropharyngeal pain [Unknown]

NARRATIVE: CASE EVENT DATE: 201801
